FAERS Safety Report 12653389 (Version 3)
Quarter: 2016Q3

REPORT INFORMATION
  Report Type: Spontaneous
  Country: BR (occurrence: BR)
  Receive Date: 20160815
  Receipt Date: 20160824
  Transmission Date: 20161109
  Serious: Yes (Death, Hospitalization, Other)
  Sender: FDA-Public Use
  Company Number: BR-GILEAD-2016-0227837

PATIENT
  Age: 60 Year
  Sex: Male
  Weight: 110 kg

DRUGS (10)
  1. NORFLOXACIN [Concomitant]
     Active Substance: NORFLOXACIN
  2. SOVALDI [Suspect]
     Active Substance: SOFOSBUVIR
     Indication: HEPATITIS C
     Dosage: 400 MG, UNK
     Route: 048
     Dates: start: 20160620, end: 20160728
  3. PROPRANOLOL [Concomitant]
     Active Substance: PROPRANOLOL\PROPRANOLOL HYDROCHLORIDE
     Dosage: 10 MG, UNK
     Dates: start: 201606
  4. FUROSEMIDE. [Concomitant]
     Active Substance: FUROSEMIDE
     Dosage: 40 MG, UNK
     Dates: start: 201606
  5. VITAMIN D3 [Concomitant]
     Active Substance: CHOLECALCIFEROL
     Dosage: UNK
     Dates: start: 201606
  6. DACLATASVIR. [Concomitant]
     Active Substance: DACLATASVIR
     Indication: HEPATITIS C
     Dosage: 60 MG, UNK
     Dates: start: 20160620, end: 20160728
  7. CIPROFLOXACIN. [Concomitant]
     Active Substance: CIPROFLOXACIN
     Dosage: 500 MG, UNK
  8. RIBAVIRIN. [Concomitant]
     Active Substance: RIBAVIRIN
     Indication: HEPATITIS C
     Dosage: 250 MG, UNK
     Route: 048
     Dates: start: 20160620, end: 20160728
  9. INTERFERON [Concomitant]
     Active Substance: INTERFERON
     Dosage: UNK
     Dates: start: 200804, end: 200809
  10. CEFTRIAXONE. [Concomitant]
     Active Substance: CEFTRIAXONE

REACTIONS (17)
  - Abdominal pain [Fatal]
  - Melaena [Fatal]
  - Peritonitis bacterial [Fatal]
  - Multiple organ dysfunction syndrome [Fatal]
  - Intentional product misuse [Recovered/Resolved]
  - Upper gastrointestinal haemorrhage [Fatal]
  - Oesophageal variceal ligation [Fatal]
  - Blood pressure decreased [Fatal]
  - General physical health deterioration [Fatal]
  - Haemoglobin decreased [Fatal]
  - Liver disorder [Fatal]
  - Haematochezia [Fatal]
  - Gastrointestinal haemorrhage [Fatal]
  - Diarrhoea [Fatal]
  - Tachycardia [Fatal]
  - Depressed level of consciousness [Fatal]
  - Vomiting [Unknown]

NARRATIVE: CASE EVENT DATE: 20160717
